FAERS Safety Report 4378470-7 (Version None)
Quarter: 2004Q2

REPORT INFORMATION
  Report Type: 
  Country: None (occurrence: None)
  Receive Date: 20040609
  Receipt Date: 20040528
  Transmission Date: 20050107
  Serious: Yes (Hospitalization)
  Sender: FDA-Public Use
  Company Number: 04P-163-0262144-00

PATIENT
  Age: 34 Year
  Sex: Male
  Weight: 59.8748 kg

DRUGS (8)
  1. KALETRA [Suspect]
     Indication: HIV INFECTION
     Dosage: 3 CAPSULE, 2 IN 1 D, PER ORAL
     Route: 048
     Dates: start: 20020509, end: 20040329
  2. ZYAGEN [Concomitant]
  3. EMTRIVA [Concomitant]
  4. DAPSONE [Concomitant]
  5. FAMOTIDINE [Concomitant]
  6. VICODIN [Concomitant]
  7. EPOGEN [Concomitant]
  8. GABAPENTIN [Concomitant]

REACTIONS (7)
  - ABDOMINAL DISCOMFORT [None]
  - ABDOMINAL DISTENSION [None]
  - ABDOMINAL TENDERNESS [None]
  - ASCITES [None]
  - CONSTIPATION [None]
  - LIVER DISORDER [None]
  - THROMBOSIS [None]
